FAERS Safety Report 4424017-6 (Version None)
Quarter: 2004Q3

REPORT INFORMATION
  Report Type: 
  Country: None (occurrence: None)
  Receive Date: 20040809
  Receipt Date: 20040809
  Transmission Date: 20050211
  Serious: Yes (Other)
  Sender: FDA-Public Use
  Company Number: None

PATIENT
  Sex: Male

DRUGS (3)
  1. RITUXIMAB [Suspect]
  2. ACETAMINOPHEN [Concomitant]
  3. DIPHENHYDRDRAMINE [Concomitant]

REACTIONS (1)
  - COMA [None]
